FAERS Safety Report 13009444 (Version 1)
Quarter: 2016Q4

REPORT INFORMATION
  Report Type: Spontaneous
  Country: US (occurrence: US)
  Receive Date: 20161208
  Receipt Date: 20161208
  Transmission Date: 20170207
  Serious: No
  Sender: FDA-Public Use
  Company Number: ALCN2016US008468

PATIENT
  Sex: Female

DRUGS (1)
  1. TEARS NATURALE FORTE [Suspect]
     Active Substance: DEXTRAN 70\GLYCERIN\HYPROMELLOSES
     Indication: DRY EYE
     Route: 047

REACTIONS (2)
  - Eye irritation [Recovered/Resolved]
  - Eye pain [Recovered/Resolved]
